FAERS Safety Report 19704612 (Version 1)
Quarter: 2021Q3

REPORT INFORMATION
  Report Type: Spontaneous
  Country: US (occurrence: US)
  Receive Date: 20210816
  Receipt Date: 20210816
  Transmission Date: 20211014
  Serious: No
  Sender: FDA-Public Use
  Company Number: US-TARO-2021TAR00575

PATIENT
  Age: 23 Year
  Sex: Female

DRUGS (2)
  1. ADAPALENE GEL 0.3% [Suspect]
     Active Substance: ADAPALENE
     Dosage: UNK
     Route: 065
  2. ADAPALENE GEL 0.3% [Suspect]
     Active Substance: ADAPALENE
     Indication: PRODUCT USED FOR UNKNOWN INDICATION
     Dosage: DAILY
     Route: 065
     Dates: start: 201908

REACTIONS (4)
  - Burning sensation [Recovered/Resolved]
  - Product quality issue [Unknown]
  - Skin irritation [Recovered/Resolved]
  - Dermatitis [Recovered/Resolved]

NARRATIVE: CASE EVENT DATE: 20210521
